FAERS Safety Report 12168109 (Version 1)
Quarter: 2016Q1

REPORT INFORMATION
  Report Type: Spontaneous
  Country: US (occurrence: None)
  Receive Date: 20160309
  Receipt Date: 20160309
  Transmission Date: 20160526
  Serious: Yes (Hospitalization)
  Sender: FDA-Public Use
  Company Number: None

PATIENT
  Age: 39 Year
  Sex: Male
  Weight: 83.2 kg

DRUGS (6)
  1. DAUNORUBICIN [Suspect]
     Active Substance: DAUNORUBICIN
     Dates: end: 20160210
  2. METHOTREXATE [Suspect]
     Active Substance: METHOTREXATE
     Dates: end: 20160201
  3. ONCASPAR [Suspect]
     Active Substance: PEGASPARGASE
     Dates: end: 20160206
  4. VINCRISTINE SULFATE. [Suspect]
     Active Substance: VINCRISTINE SULFATE
     Dates: end: 20160210
  5. CYTARABINE. [Suspect]
     Active Substance: CYTARABINE
     Dates: end: 20160121
  6. DEXAMETHASONE. [Suspect]
     Active Substance: DEXAMETHASONE
     Dates: end: 20160209

REACTIONS (2)
  - Orthostatic hypotension [None]
  - Tachycardia [None]

NARRATIVE: CASE EVENT DATE: 20160212
